FAERS Safety Report 10239555 (Version 1)
Quarter: 2014Q2

REPORT INFORMATION
  Report Type: Spontaneous
  Country: AT (occurrence: PY)
  Receive Date: 20140616
  Receipt Date: 20140616
  Transmission Date: 20141212
  Serious: Yes (Death)
  Sender: FDA-Public Use
  Company Number: AT-NAPPMUNDI-DEU-2014-0014720

PATIENT
  Age: 46 Year
  Sex: Female

DRUGS (1)
  1. HYDROMORPHONE HCL [Suspect]
     Indication: PRODUCT USED FOR UNKNOWN INDICATION
     Dosage: UNK
     Dates: start: 201109

REACTIONS (3)
  - Overdose [Fatal]
  - Cardio-respiratory arrest [Fatal]
  - Homicide [Fatal]
